FAERS Safety Report 20691085 (Version 1)
Quarter: 2022Q2

REPORT INFORMATION
  Report Type: Spontaneous
  Country: CN (occurrence: CN)
  Receive Date: 20220408
  Receipt Date: 20220408
  Transmission Date: 20220721
  Serious: Yes (Hospitalization, Other)
  Sender: FDA-Public Use
  Company Number: CN-LUNDBECK-DKLU3046568

PATIENT
  Sex: Female
  Weight: 60 kg

DRUGS (2)
  1. CITALOPRAM HYDROBROMIDE [Suspect]
     Active Substance: CITALOPRAM HYDROBROMIDE
     Indication: Anxiety
     Dosage: 7 GRANULES
     Route: 048
     Dates: start: 20220322, end: 20220322
  2. CITALOPRAM HYDROBROMIDE [Suspect]
     Active Substance: CITALOPRAM HYDROBROMIDE
     Indication: Depression

REACTIONS (3)
  - Toxicity to various agents [Recovering/Resolving]
  - Hepatic function abnormal [Recovering/Resolving]
  - Overdose [Unknown]
